FAERS Safety Report 5647105-5 (Version None)
Quarter: 2008Q1

REPORT INFORMATION
  Report Type: 
  Country: None (occurrence: None)
  Receive Date: 20080228
  Receipt Date: 20080212
  Transmission Date: 20080703
  Serious: Yes (Other)
  Sender: FDA-Public Use
  Company Number: 2008JP000557

PATIENT
  Age: 91 Year
  Sex: Male
  Weight: 50 kg

DRUGS (3)
  1. VESICARE [Suspect]
     Indication: HYPERTONIC BLADDER
     Dosage: 2.5 MG, UID/QD, ORAL
     Route: 048
     Dates: start: 20071213, end: 20071220
  2. ETODOLAC [Concomitant]
  3. SELBEX (TEPRENONE) [Concomitant]

REACTIONS (2)
  - ABASIA [None]
  - MUSCULAR WEAKNESS [None]
